FAERS Safety Report 6033300-2 (Version None)
Quarter: 2009Q1

REPORT INFORMATION
  Report Type: 
  Country: None (occurrence: None)
  Receive Date: 20090109
  Receipt Date: 20090106
  Transmission Date: 20090719
  Serious: Yes (Life-Threatening)
  Sender: FDA-Public Use
  Company Number: GB-BRISTOL-MYERS SQUIBB COMPANY-14463756

PATIENT
  Age: 54 Year
  Sex: Male
  Weight: 71 kg

DRUGS (5)
  1. ERBITUX [Suspect]
     Indication: COLORECTAL CANCER
     Route: 041
     Dates: start: 20081202, end: 20081202
  2. FLUOROURACIL [Suspect]
     Indication: COLORECTAL CANCER
     Dates: start: 20081202, end: 20081203
  3. OXALIPLATIN [Suspect]
     Indication: COLORECTAL CANCER
     Dates: start: 20081202, end: 20081202
  4. CYCLIZINE [Concomitant]
     Indication: MALAISE
     Route: 048
     Dates: start: 20081202, end: 20081204
  5. DEXAMETHASONE TAB [Concomitant]
     Route: 048
     Dates: start: 20081202, end: 20081204

REACTIONS (1)
  - VENTRICULAR TACHYCARDIA [None]
